FAERS Safety Report 5488609-8 (Version None)
Quarter: 2007Q4

REPORT INFORMATION
  Report Type: 
  Country: None (occurrence: None)
  Receive Date: 20071001
  Receipt Date: 20061211
  Transmission Date: 20080405
  Serious: Yes (Hospitalization, Other)
  Sender: FDA-Public Use
  Company Number: 200616366BWH

PATIENT
  Age: 59 Year
  Sex: Female
  Weight: 52.1637 kg

DRUGS (3)
  1. CIPRO XR [Suspect]
     Indication: BRONCHITIS
  2. PROMETIRUM [Concomitant]
  3. NEXIUM [Concomitant]

REACTIONS (1)
  - CONVULSION [None]
